FAERS Safety Report 4539499-9 (Version None)
Quarter: 2004Q4

REPORT INFORMATION
  Report Type: 
  Country: None (occurrence: None)
  Receive Date: 20041223
  Receipt Date: 20041208
  Transmission Date: 20050328
  Serious: No
  Sender: FDA-Public Use
  Company Number: A01200406177

PATIENT
  Age: 75 Year
  Sex: Male

DRUGS (3)
  1. ELIGARD [Suspect]
     Indication: PROSTATE CANCER
     Dosage: SUBCUTANEOUS
     Route: 058
     Dates: start: 20040915
  2. CASODEX [Suspect]
     Indication: PROSTATE CANCER
     Dosage: 50 MG OD, ORAL
     Route: 048
     Dates: start: 20040901
  3. PROSCAR [Suspect]
     Indication: PROSTATE CANCER
     Dosage: ORAL
     Route: 048
     Dates: start: 20040901

REACTIONS (1)
  - CERVICOBRACHIAL SYNDROME [None]
